FAERS Safety Report 23860784 (Version 1)
Quarter: 2024Q2

REPORT INFORMATION
  Report Type: Report from Study
  Country: US (occurrence: US)
  Receive Date: 20240516
  Receipt Date: 20240516
  Transmission Date: 20240716
  Serious: Yes (Other)
  Sender: FDA-Public Use
  Company Number: US-NOVOPROD-1221289

PATIENT

DRUGS (1)
  1. NOVOLOG [Suspect]
     Active Substance: INSULIN ASPART
     Indication: Steroid diabetes
     Dosage: UNK
     Route: 058

REACTIONS (4)
  - Neuropathy peripheral [Unknown]
  - Renal transplant [Unknown]
  - Renal transplant [Unknown]
  - Hypoacusis [Unknown]

NARRATIVE: CASE EVENT DATE: 20070101
